FAERS Safety Report 7202314-9 (Version None)
Quarter: 2010Q4

REPORT INFORMATION
  Report Type: 
  Country: None (occurrence: None)
  Receive Date: 20101229
  Receipt Date: 20101221
  Transmission Date: 20110411
  Serious: Yes (Other)
  Sender: FDA-Public Use
  Company Number: PHHO2010DE17867

PATIENT
  Sex: Female
  Weight: 68 kg

DRUGS (5)
  1. FTY 720 [Suspect]
     Indication: MULTIPLE SCLEROSIS
     Dosage: 0.5 MG, QD
     Route: 048
     Dates: start: 20101110, end: 20101125
  2. FTY 720 [Suspect]
     Dosage: NO TREATMENT
     Dates: start: 20101126, end: 20101130
  3. FTY 720 [Suspect]
     Dosage: 0.5 MG, QD
     Route: 048
     Dates: start: 20101201
  4. BETAFERON [Concomitant]
     Indication: MULTIPLE SCLEROSIS
  5. COPAXONE [Concomitant]
     Indication: MULTIPLE SCLEROSIS

REACTIONS (4)
  - DISTURBANCE IN ATTENTION [None]
  - DYSGRAPHIA [None]
  - SENSORY DISTURBANCE [None]
  - TENSION HEADACHE [None]
